FAERS Safety Report 7968111-1 (Version None)
Quarter: 2011Q4

REPORT INFORMATION
  Report Type: 
  Country: None (occurrence: None)
  Receive Date: 20111209
  Receipt Date: 20111202
  Transmission Date: 20120403
  Serious: Yes (Hospitalization)
  Sender: FDA-Public Use
  Company Number: DE-ABBOTT-11P-062-0879930-00

PATIENT
  Sex: Female
  Weight: 60 kg

DRUGS (2)
  1. PREDNISOLONE [Concomitant]
     Indication: PRODUCT USED FOR UNKNOWN INDICATION
     Dosage: 4MG DAILY
     Route: 048
     Dates: start: 20031201
  2. HUMIRA [Suspect]
     Indication: RHEUMATOID ARTHRITIS
     Route: 058
     Dates: start: 20060518

REACTIONS (4)
  - DYSPEPSIA [None]
  - DYSPNOEA [None]
  - CHEST PAIN [None]
  - ACUTE CORONARY SYNDROME [None]
